FAERS Safety Report 10241321 (Version 1)
Quarter: 2014Q2

REPORT INFORMATION
  Report Type: Spontaneous
  Country: US (occurrence: US)
  Receive Date: 20140617
  Receipt Date: 20140617
  Transmission Date: 20141212
  Serious: Yes (Hospitalization)
  Sender: FDA-Public Use
  Company Number: US-WATSON-2014-12413

PATIENT
  Age: 58 Year
  Sex: Female

DRUGS (1)
  1. BUPROPION HYDROCHLORIDE (WATSON LABORATORIES) [Suspect]
     Indication: MAJOR DEPRESSION
     Dosage: 150 MG, BID
     Route: 065
     Dates: start: 20110707, end: 20110711

REACTIONS (1)
  - Dysphemia [Recovered/Resolved]
